FAERS Safety Report 21263021 (Version 3)
Quarter: 2022Q4

REPORT INFORMATION
  Report Type: Spontaneous
  Country: JP (occurrence: JP)
  Receive Date: 20220828
  Receipt Date: 20221117
  Transmission Date: 20230112
  Serious: Yes (Other)
  Sender: FDA-Public Use
  Company Number: JP-NOVARTISPH-NVSJ2022JP093109

PATIENT
  Age: 76 Year
  Sex: Female

DRUGS (3)
  1. BEOVU [Suspect]
     Active Substance: BROLUCIZUMAB-DBLL
     Indication: Age-related macular degeneration
     Dosage: 6 MG
     Route: 031
     Dates: start: 20220415, end: 20220415
  2. BEOVU [Suspect]
     Active Substance: BROLUCIZUMAB-DBLL
     Dosage: 6 MG
     Route: 031
     Dates: start: 20220519, end: 20220519
  3. MOXIFLOXACIN [Concomitant]
     Active Substance: MOXIFLOXACIN
     Indication: Product used for unknown indication
     Dosage: 4/LEFT EYE
     Route: 047

REACTIONS (11)
  - Papilloedema [Recovered/Resolved]
  - Visual field defect [Recovered/Resolved]
  - Retinal vasculitis [Recovered/Resolved]
  - Retinal perivascular sheathing [Recovered/Resolved with Sequelae]
  - Eye inflammation [Recovering/Resolving]
  - Vitreous opacities [Unknown]
  - Visual acuity reduced [Recovered/Resolved]
  - Retinal artery occlusion [Recovered/Resolved]
  - Iritis [Recovering/Resolving]
  - Vitreous floaters [Unknown]
  - Visual acuity reduced transiently [Recovered/Resolved]

NARRATIVE: CASE EVENT DATE: 20220519
